FAERS Safety Report 7955903-8 (Version None)
Quarter: 2011Q4

REPORT INFORMATION
  Report Type: 
  Country: None (occurrence: None)
  Receive Date: 20111205
  Receipt Date: 20111129
  Transmission Date: 20120403
  Serious: No
  Sender: FDA-Public Use
  Company Number: US-BIOGENIDEC-2011BI045242

PATIENT
  Age: 27 Year
  Sex: Male

DRUGS (2)
  1. TYSABRI [Suspect]
     Route: 042
     Dates: start: 20090305, end: 20100812
  2. TYSABRI [Suspect]
     Indication: MULTIPLE SCLEROSIS
     Route: 042
     Dates: start: 20111005

REACTIONS (5)
  - URINARY INCONTINENCE [None]
  - BRADYPHRENIA [None]
  - SLUGGISHNESS [None]
  - BALANCE DISORDER [None]
  - GAIT DISTURBANCE [None]
